FAERS Safety Report 11078948 (Version 2)
Quarter: 2020Q2

REPORT INFORMATION
  Report Type: Spontaneous
  Country: US (occurrence: US)
  Receive Date: 20150430
  Receipt Date: 20200603
  Transmission Date: 20200713
  Serious: Yes (Death, Hospitalization, Other)
  Sender: FDA-Public Use
  Company Number: US-MERCK-1504USA023706

PATIENT
  Sex: Male
  Weight: 96.15 kg

DRUGS (3)
  1. GEMCITABINE. [Suspect]
     Active Substance: GEMCITABINE
     Dosage: UNK
     Dates: start: 201305, end: 201307
  2. JANUVIA [Suspect]
     Active Substance: SITAGLIPTIN PHOSPHATE
     Dosage: 100 MILLIGRAM, ONCE DAILY
     Route: 048
     Dates: start: 20120206, end: 20130211
  3. ABRAXANE [Suspect]
     Active Substance: PACLITAXEL
     Dosage: UNK
     Dates: start: 201305, end: 201307

REACTIONS (32)
  - Cardiac failure congestive [Unknown]
  - Emotional disorder [Recovered/Resolved]
  - Umbilical hernia repair [Unknown]
  - Hypotension [Unknown]
  - Impaired gastric emptying [Unknown]
  - Malignant neoplasm of spinal cord [Unknown]
  - Pulmonary toxicity [Unknown]
  - Weight decreased [Unknown]
  - Hypoalbuminaemia [Unknown]
  - Atrial fibrillation [Recovered/Resolved]
  - Hepatic steatosis [Recovering/Resolving]
  - Coronary artery disease [Unknown]
  - Pancreatic carcinoma stage II [Fatal]
  - Urinary retention [Recovered/Resolved]
  - Bronchiolitis [Unknown]
  - Vomiting [Recovered/Resolved]
  - Ascites [Recovered/Resolved]
  - Cardiac herniation [Unknown]
  - Cataract [Unknown]
  - Transfusion [Unknown]
  - Respiratory failure [Fatal]
  - Metastases to lymph nodes [Unknown]
  - Syncope [Unknown]
  - Drug intolerance [Unknown]
  - Gastrooesophageal reflux disease [Unknown]
  - Pneumonia aspiration [Unknown]
  - Hepatic cirrhosis [Unknown]
  - Syncope [Unknown]
  - Mental disorder [Recovered/Resolved]
  - Nausea [Recovered/Resolved]
  - Anaemia [Unknown]
  - Vitamin D deficiency [Unknown]

NARRATIVE: CASE EVENT DATE: 2013
